FAERS Safety Report 7299236-4 (Version None)
Quarter: 2011Q1

REPORT INFORMATION
  Report Type: 
  Country: None (occurrence: None)
  Receive Date: 20110217
  Receipt Date: 20110209
  Transmission Date: 20110831
  Serious: Yes (Disabling)
  Sender: FDA-Public Use
  Company Number: JP-MERCK-1102USA01566

PATIENT
  Age: 78 Year
  Sex: Male

DRUGS (6)
  1. AMARYL [Concomitant]
     Route: 048
     Dates: start: 20110203
  2. JANUVIA [Suspect]
     Indication: HYPERGLYCAEMIA
     Route: 048
     Dates: start: 20110203, end: 20110205
  3. JANUVIA [Suspect]
     Route: 048
     Dates: start: 20101104, end: 20110106
  4. AMARYL [Concomitant]
     Indication: HYPERGLYCAEMIA
     Route: 048
     Dates: start: 20110106, end: 20110202
  5. ACTOS [Concomitant]
     Indication: HYPERGLYCAEMIA
     Route: 048
  6. IMIDAPRIL HYDROCHLORIDE [Concomitant]
     Indication: HYPERTENSION
     Route: 048

REACTIONS (2)
  - GLYCOSYLATED HAEMOGLOBIN INCREASED [None]
  - LIVER DISORDER [None]
